FAERS Safety Report 4962061-0 (Version None)
Quarter: 2006Q2

REPORT INFORMATION
  Report Type: 
  Country: None (occurrence: None)
  Receive Date: 20060403
  Receipt Date: 20060403
  Transmission Date: 20061013
  Serious: Yes (Hospitalization)
  Sender: FDA-Public Use
  Company Number: None

PATIENT
  Sex: Female
  Weight: 18 kg

DRUGS (4)
  1. MERCAPTOPURINE [Suspect]
     Indication: PRECURSOR B-LYMPHOBLASTIC LYMPHOMA
     Dosage: 3510 MG
     Dates: start: 20060116, end: 20060319
  2. METHOTREXATE [Suspect]
     Dosage: 12 MG
     Dates: start: 20060116, end: 20060116
  3. VINCRISTINE SULFATE [Suspect]
     Dosage: 3 MG
     Dates: start: 20060116, end: 20060313
  4. DEXAMETHASONE [Suspect]
     Dosage: 60 MG
     Dates: start: 20060116, end: 20060317

REACTIONS (10)
  - BLOOD PRESSURE DECREASED [None]
  - CARDIOVASCULAR DISORDER [None]
  - DISSEMINATED INTRAVASCULAR COAGULATION [None]
  - HEPATIC ENZYME INCREASED [None]
  - HEPATIC FAILURE [None]
  - OXYGEN SATURATION DECREASED [None]
  - PERIPHERAL COLDNESS [None]
  - PYREXIA [None]
  - RESPIRATORY DISTRESS [None]
  - SEPSIS [None]
